FAERS Safety Report 9235864 (Version 2)
Quarter: 2013Q2

REPORT INFORMATION
  Report Type: Report from Study
  Country: IT (occurrence: IT)
  Receive Date: 20130417
  Receipt Date: 20130516
  Transmission Date: 20140414
  Serious: Yes (Other)
  Sender: FDA-Public Use
  Company Number: IT-ASTELLAS-2013US004010

PATIENT
  Age: 8 Year
  Sex: 0

DRUGS (1)
  1. AMBISOME [Suspect]
     Indication: PROPHYLAXIS
     Dosage: 10 MG/KG, WEEKLY
     Route: 042

REACTIONS (3)
  - Intentional overdose [Unknown]
  - Hepatotoxicity [Recovered/Resolved]
  - Gamma-glutamyltransferase increased [Recovered/Resolved]
